FAERS Safety Report 8339170-1 (Version None)
Quarter: 2012Q2

REPORT INFORMATION
  Report Type: 
  Country: None (occurrence: None)
  Receive Date: 20120507
  Receipt Date: 20120430
  Transmission Date: 20120825
  Serious: Yes (Other)
  Sender: FDA-Public Use
  Company Number: DE-BAYER-2012-039526

PATIENT
  Age: 37 Year
  Sex: Female
  Weight: 57 kg

DRUGS (2)
  1. BETASERON [Suspect]
     Dosage: UNK
     Dates: start: 20040101, end: 20120417
  2. NUVARING [Concomitant]
     Dosage: UNK

REACTIONS (1)
  - ANAEMIA HAEMOLYTIC AUTOIMMUNE [None]
